FAERS Safety Report 5229037-X (Version None)
Quarter: 2007Q1

REPORT INFORMATION
  Report Type: 
  Country: None (occurrence: None)
  Receive Date: 20061201
  Receipt Date: 20060918
  Transmission Date: 20070707
  Serious: No
  Sender: FDA-Public Use
  Company Number: US200609004472

PATIENT
  Age: 63 Year
  Sex: Male

DRUGS (1)
  1. CYMBALTA [Suspect]
     Indication: DEPRESSION
     Dosage: 60 MG, ORAL
     Route: 048
     Dates: start: 20060601

REACTIONS (5)
  - AGITATION [None]
  - ANGER [None]
  - INTERMITTENT EXPLOSIVE DISORDER [None]
  - TENSION [None]
  - VERBAL ABUSE [None]
